FAERS Safety Report 15547351 (Version 3)
Quarter: 2019Q2

REPORT INFORMATION
  Report Type: Report from Study
  Country: US (occurrence: US)
  Receive Date: 20181024
  Receipt Date: 20190405
  Transmission Date: 20190711
  Serious: Yes (Other)
  Sender: FDA-Public Use
  Company Number: US-ALEXION PHARMACEUTICALS INC.-A201813977

PATIENT
  Sex: Female

DRUGS (2)
  1. SOLIRIS [Suspect]
     Active Substance: ECULIZUMAB
     Indication: PRODUCT USED FOR UNKNOWN INDICATION
     Dosage: UNK
     Route: 065
  2. SOLIRIS [Suspect]
     Active Substance: ECULIZUMAB
     Dosage: UNK, Q3W
     Route: 065

REACTIONS (7)
  - Micturition disorder [Unknown]
  - Abdominal pain [Not Recovered/Not Resolved]
  - Renal impairment [Unknown]
  - Dysuria [Unknown]
  - Nausea [Not Recovered/Not Resolved]
  - Blood urine present [Unknown]
  - Decreased appetite [Unknown]

NARRATIVE: CASE EVENT DATE: 201810
